FAERS Safety Report 4533537-5 (Version None)
Quarter: 2004Q4

REPORT INFORMATION
  Report Type: 
  Country: None (occurrence: None)
  Receive Date: 20041206
  Receipt Date: 20041004
  Transmission Date: 20050328
  Serious: No
  Sender: FDA-Public Use
  Company Number: USA041080047

PATIENT
  Sex: Male
  Weight: 57 kg

DRUGS (3)
  1. CYMBALTA [Suspect]
     Indication: DEPRESSION
     Dosage: 60 MG DAY
     Dates: start: 20041001
  2. TOPROL-XL [Concomitant]
  3. MORPHINE SULFATE [Concomitant]

REACTIONS (7)
  - BLOOD PRESSURE INCREASED [None]
  - DRUG WITHDRAWAL SYNDROME [None]
  - FATIGUE [None]
  - FEELING ABNORMAL [None]
  - HEART RATE DECREASED [None]
  - HYPERHIDROSIS [None]
  - INSOMNIA [None]
